FAERS Safety Report 19430564 (Version 1)
Quarter: 2021Q2

REPORT INFORMATION
  Report Type: Spontaneous
  Country: CA (occurrence: CA)
  Receive Date: 20210617
  Receipt Date: 20210617
  Transmission Date: 20210717
  Serious: Yes (Hospitalization, Disabling)
  Sender: FDA-Public Use
  Company Number: CA-TEVA-2021-CA-1921335

PATIENT
  Age: 79 Year
  Sex: Male

DRUGS (12)
  1. EMPAGLIFLOZIN;LINAGLIPTIN [Concomitant]
     Active Substance: EMPAGLIFLOZIN\LINAGLIPTIN
  2. TICAGRELOR. [Concomitant]
     Active Substance: TICAGRELOR
  3. METFORMIN [Concomitant]
     Active Substance: METFORMIN HYDROCHLORIDE
  4. MIRABEGRON [Concomitant]
     Active Substance: MIRABEGRON
  5. NITRO SPRAY [Concomitant]
     Active Substance: NITROGLYCERIN
  6. VITAMIN B12 [Concomitant]
     Active Substance: CYANOCOBALAMIN
  7. BASAGLAR KWIKPEN ? 80 UNITS PER INJECTION DELIVERY [Concomitant]
  8. METOPROLOL. [Concomitant]
     Active Substance: METOPROLOL
     Route: 065
  9. PERINDOPRIL [Concomitant]
     Active Substance: PERINDOPRIL
  10. ROSUVASTATIN. [Suspect]
     Active Substance: ROSUVASTATIN
  11. ASA [Concomitant]
     Active Substance: ASPIRIN
  12. ROSUVASTATIN. [Concomitant]
     Active Substance: ROSUVASTATIN

REACTIONS (6)
  - Dropped head syndrome [Unknown]
  - Dysphagia [Unknown]
  - Gastrointestinal tube insertion [Unknown]
  - Asthenia [Unknown]
  - Muscular weakness [Unknown]
  - Gait disturbance [Unknown]
